FAERS Safety Report 15668607 (Version 1)
Quarter: 2018Q4

REPORT INFORMATION
  Report Type: Spontaneous
  Country: US (occurrence: US)
  Receive Date: 20181129
  Receipt Date: 20181129
  Transmission Date: 20190205
  Serious: No
  Sender: FDA-Public Use
  Company Number: US-TEVA-2018-US-979255

PATIENT
  Sex: Female

DRUGS (1)
  1. CLONIDINE. [Suspect]
     Active Substance: CLONIDINE
     Dosage: .1 MILLIGRAM DAILY;
     Route: 065

REACTIONS (2)
  - Product adhesion issue [Unknown]
  - Rash [Unknown]
